FAERS Safety Report 7202102-3 (Version None)
Quarter: 2010Q4

REPORT INFORMATION
  Report Type: 
  Country: None (occurrence: None)
  Receive Date: 20101229
  Receipt Date: 20101215
  Transmission Date: 20110411
  Serious: Yes (Other)
  Sender: FDA-Public Use
  Company Number: PHHY2010DE85511

PATIENT
  Age: 21 Year
  Sex: Female

DRUGS (1)
  1. LEPONEX [Suspect]
     Dosage: 100 MG

REACTIONS (1)
  - VISUAL IMPAIRMENT [None]
